FAERS Safety Report 12943084 (Version 3)
Quarter: 2017Q1

REPORT INFORMATION
  Report Type: Spontaneous
  Country: US (occurrence: US)
  Receive Date: 20161115
  Receipt Date: 20170126
  Transmission Date: 20170428
  Serious: Yes (Other)
  Sender: FDA-Public Use
  Company Number: US-GE HEALTHCARE MEDICAL DIAGNOSTICS-MYVW-PR-1611S-0068

PATIENT
  Age: 85 Year
  Sex: Male

DRUGS (10)
  1. MYOVIEW [Suspect]
     Active Substance: TECHNETIUM TC-99M TETROFOSMIN
     Indication: ARTERIOSCLEROSIS CORONARY ARTERY
  2. ASPIRIN. [Concomitant]
     Active Substance: ASPIRIN
     Route: 048
  3. PROSCAR [Concomitant]
     Active Substance: FINASTERIDE
     Route: 048
  4. EZETIMIBE. [Concomitant]
     Active Substance: EZETIMIBE
     Route: 048
  5. EXFORGE [Concomitant]
     Active Substance: AMLODIPINE BESYLATE\VALSARTAN
     Route: 048
  6. MYOVIEW [Suspect]
     Active Substance: TECHNETIUM TC-99M TETROFOSMIN
     Indication: DIAGNOSTIC PROCEDURE
  7. COLCRYS [Concomitant]
     Active Substance: COLCHICINE
     Route: 048
  8. MYOVIEW [Suspect]
     Active Substance: TECHNETIUM TC-99M TETROFOSMIN
     Indication: CORONARY ARTERY BYPASS
     Dosage: DOSE NOT REPORTED
     Route: 065
     Dates: start: 20161109, end: 20161109
  9. SIMVASTATIN. [Concomitant]
     Active Substance: SIMVASTATIN
     Route: 048
  10. TECHNETIUM TC-99M GENERATOR [Concomitant]
     Active Substance: TECHNETIUM TC-99M

REACTIONS (4)
  - Erythema [Recovered/Resolved]
  - Seizure [Recovered/Resolved]
  - Feeling hot [Recovered/Resolved]
  - Loss of consciousness [Recovered/Resolved]

NARRATIVE: CASE EVENT DATE: 20161109
